FAERS Safety Report 19210427 (Version 1)
Quarter: 2021Q2

REPORT INFORMATION
  Report Type: Spontaneous
  Country: US (occurrence: US)
  Receive Date: 20210504
  Receipt Date: 20210504
  Transmission Date: 20210717
  Serious: No
  Sender: FDA-Public Use
  Company Number: US-APOTEX-2020AP024087

PATIENT
  Sex: Female
  Weight: 79.38 kg

DRUGS (1)
  1. TRAZODONE [Suspect]
     Active Substance: TRAZODONE HYDROCHLORIDE
     Indication: SLEEP DISORDER
     Dosage: 300 MILLIGRAM
     Route: 065
     Dates: start: 2012

REACTIONS (1)
  - Amnesia [Recovered/Resolved]
